FAERS Safety Report 16582636 (Version 1)
Quarter: 2019Q3

REPORT INFORMATION
  Report Type: Spontaneous
  Country: FR (occurrence: FR)
  Receive Date: 20190717
  Receipt Date: 20190717
  Transmission Date: 20191004
  Serious: Yes (Hospitalization)
  Sender: FDA-Public Use
  Company Number: FR-ACCORD-138420

PATIENT
  Age: 85 Year
  Sex: Male

DRUGS (14)
  1. SERESTA [Suspect]
     Active Substance: OXAZEPAM
     Dosage: 50 MG - SINGLE DOSE
     Route: 048
     Dates: start: 20190620, end: 20190620
  2. MOVICOL [Concomitant]
     Active Substance: POLYETHYLENE GLYCOL 3350\POTASSIUM CHLORIDE\SODIUM BICARBONATE\SODIUM CHLORIDE
  3. KARDEGIC [Concomitant]
     Active Substance: ASPIRIN DL-LYSINE
  4. MIANSERIN [Concomitant]
     Active Substance: MIANSERIN
  5. TRAMADOL. [Concomitant]
     Active Substance: TRAMADOL
  6. AMIODARONE [Concomitant]
     Active Substance: AMIODARONE
  7. RISPERIDONE. [Concomitant]
     Active Substance: RISPERIDONE
  8. SIMVASTATIN. [Suspect]
     Active Substance: SIMVASTATIN
     Dosage: 10 MG - SINGLE DOSE
     Route: 048
     Dates: start: 20190620, end: 20190620
  9. TAMSULOSIN/TAMSULOSIN HYDROCHLORIDE [Concomitant]
  10. OLANZAPINE. [Suspect]
     Active Substance: OLANZAPINE
     Dosage: 20 DROPS - SINGLE SHOT
     Route: 048
     Dates: start: 20190620, end: 20190620
  11. VALPROIC ACID. [Suspect]
     Active Substance: VALPROIC ACID
     Dosage: 750 MG - SINGLE DOSE
     Route: 048
     Dates: start: 20190620, end: 20190620
  12. LOXAPAC [Suspect]
     Active Substance: LOXAPINE
     Dosage: 30 DROPS - SINGLE SHOT
     Route: 048
     Dates: start: 20190620, end: 20190620
  13. LANSOPRAZOLE. [Concomitant]
     Active Substance: LANSOPRAZOLE
  14. PARACETAMOL [Concomitant]
     Active Substance: ACETAMINOPHEN

REACTIONS (2)
  - Wrong patient received product [Recovered/Resolved]
  - Somnolence [Recovered/Resolved]

NARRATIVE: CASE EVENT DATE: 20190620
